FAERS Safety Report 5191166-7 (Version None)
Quarter: 2006Q4

REPORT INFORMATION
  Report Type: 
  Country: None (occurrence: None)
  Receive Date: 20061220
  Receipt Date: 20061220
  Transmission Date: 20070319
  Serious: Yes (Hospitalization)
  Sender: FDA-Public Use
  Company Number: None

PATIENT
  Age: 48 Year
  Sex: Male
  Weight: 99.8 kg

DRUGS (7)
  1. IBUPROFEN [Suspect]
     Indication: BACK PAIN
     Dosage: 4-5 DAILY PRN PO   PAST FEW WEEKS
     Route: 048
  2. BC POWDERS (ASA + SALICYLAMIDE) [Suspect]
     Indication: BACK PAIN
     Dosage: ^OFF AND ON^ PO PRN    PAST FEW WEEKS
     Route: 048
  3. ALEVE [Concomitant]
  4. ADVIL [Concomitant]
  5. BCS [Concomitant]
  6. BC POWDER (ASA, SALICYLAMIDE, CAFFEINE) [Concomitant]
  7. ASPIRIN [Concomitant]

REACTIONS (11)
  - ALCOHOL WITHDRAWAL SYNDROME [None]
  - ALCOHOLISM [None]
  - ANAEMIA [None]
  - COAGULOPATHY [None]
  - ENCEPHALOPATHY [None]
  - GASTRITIS EROSIVE [None]
  - HEPATIC CIRRHOSIS [None]
  - HEPATORENAL SYNDROME [None]
  - MALLORY-WEISS SYNDROME [None]
  - PORTAL HYPERTENSION [None]
  - UPPER GASTROINTESTINAL HAEMORRHAGE [None]
